FAERS Safety Report 5653885-5 (Version None)
Quarter: 2008Q1

REPORT INFORMATION
  Report Type: 
  Country: None (occurrence: None)
  Receive Date: 20080201
  Receipt Date: 20050509
  Transmission Date: 20080703
  Serious: No
  Sender: FDA-Public Use
  Company Number: 20074412

PATIENT

DRUGS (1)
  1. LIORESAL [Suspect]
     Indication: MUSCLE SPASTICITY
     Dosage: DAILY, INTRATHECAL
     Route: 037

REACTIONS (3)
  - ATAXIA [None]
  - GAIT DISTURBANCE [None]
  - INJURY [None]
